FAERS Safety Report 24211480 (Version 1)
Quarter: 2024Q3

REPORT INFORMATION
  Report Type: Spontaneous
  Country: US (occurrence: US)
  Receive Date: 20240814
  Receipt Date: 20240814
  Transmission Date: 20241016
  Serious: No
  Sender: TEVA
  Company Number: US-TEVA-VS-3228174

PATIENT
  Age: 59 Year
  Sex: Female

DRUGS (4)
  1. PAZOPANIB [Suspect]
     Active Substance: PAZOPANIB
     Indication: Product used for unknown indication
     Dosage: 800 MG DAILY
     Route: 065
     Dates: start: 20240703
  2. PAZOPANIB [Suspect]
     Active Substance: PAZOPANIB
     Indication: Product used for unknown indication
     Dosage: 600 MG DAILY
     Route: 065
     Dates: start: 20240716
  3. LISINOPRIL [Concomitant]
     Active Substance: LISINOPRIL
     Indication: Product used for unknown indication
     Route: 065
     Dates: start: 20240722
  4. LISINOPRIL [Concomitant]
     Active Substance: LISINOPRIL
     Indication: Product used for unknown indication
     Route: 065
     Dates: start: 20240718

REACTIONS (1)
  - Blood pressure increased [Unknown]
